FAERS Safety Report 16538437 (Version 1)
Quarter: 2019Q3

REPORT INFORMATION
  Report Type: Spontaneous
  Country: ES (occurrence: ES)
  Receive Date: 20190708
  Receipt Date: 20190708
  Transmission Date: 20191004
  Serious: Yes (Hospitalization)
  Sender: FDA-Public Use
  Company Number: ES-TEVA-2019-ES-1073527

PATIENT
  Age: 82 Year
  Sex: Male

DRUGS (1)
  1. ALOPURINOL (318A) [Suspect]
     Active Substance: ALLOPURINOL
     Route: 048
     Dates: start: 20190402, end: 20190524

REACTIONS (1)
  - Toxic skin eruption [Recovered/Resolved]

NARRATIVE: CASE EVENT DATE: 20190521
